FAERS Safety Report 5312366-9 (Version None)
Quarter: 2007Q2

REPORT INFORMATION
  Report Type: 
  Country: None (occurrence: None)
  Receive Date: 20070430
  Receipt Date: 20061106
  Transmission Date: 20071010
  Serious: No
  Sender: FDA-Public Use
  Company Number: 2006UW21697

PATIENT
  Age: 79 Year
  Sex: Female
  Weight: 61.2 kg

DRUGS (7)
  1. NEXIUM [Suspect]
     Indication: GASTROOESOPHAGEAL REFLUX DISEASE
     Route: 048
     Dates: start: 20050101
  2. SYNTHROID [Concomitant]
  3. ZOLOFT [Concomitant]
  4. NAMENDA [Concomitant]
  5. DETROL LA [Concomitant]
  6. COLAZAL [Concomitant]
  7. GLUCOSAMINE W/CHONDROITIN [Concomitant]

REACTIONS (1)
  - HYPERCHLORHYDRIA [None]
